FAERS Safety Report 7761243-2 (Version None)
Quarter: 2011Q3

REPORT INFORMATION
  Report Type: 
  Country: None (occurrence: None)
  Receive Date: 20110920
  Receipt Date: 20110913
  Transmission Date: 20111222
  Serious: Yes (Death)
  Sender: FDA-Public Use
  Company Number: US-CELGENEUS-163-21880-11091715

PATIENT
  Sex: Female
  Weight: 49.486 kg

DRUGS (5)
  1. ATENOLOL [Concomitant]
     Dosage: 50 MILLIGRAM
     Route: 048
     Dates: start: 20090101
  2. PREMARIN [Concomitant]
     Dosage: 625 MILLIGRAM
     Route: 048
     Dates: start: 20090101
  3. LEXAPRO [Concomitant]
     Dosage: 5 MILLIGRAM
     Route: 048
     Dates: start: 20090101
  4. REVLIMID [Suspect]
     Indication: MULTIPLE MYELOMA
     Dosage: 25 MILLIGRAM
     Route: 048
     Dates: start: 20110530
  5. REVLIMID [Suspect]

REACTIONS (2)
  - PNEUMONIA [None]
  - DEATH [None]
